FAERS Safety Report 20104372 (Version 1)
Quarter: 2021Q4

REPORT INFORMATION
  Report Type: Spontaneous
  Country: US (occurrence: None)
  Receive Date: 20211123
  Receipt Date: 20211123
  Transmission Date: 20220303
  Serious: No
  Sender: FDA-Public Use
  Company Number: None

PATIENT
  Age: 48 Year
  Sex: Female

DRUGS (1)
  1. TALTZ [Suspect]
     Active Substance: IXEKIZUMAB
     Indication: Ankylosing spondylitis
     Dosage: OTHER QUANTITY : 80;?FREQUENCY : MONTHLY;?
     Route: 058
     Dates: start: 20211106, end: 20211113

REACTIONS (6)
  - Chest discomfort [None]
  - Throat tightness [None]
  - Rash [None]
  - Pain [None]
  - Contusion [None]
  - Pruritus [None]

NARRATIVE: CASE EVENT DATE: 20211113
